FAERS Safety Report 5017289-0 (Version None)
Quarter: 2006Q2

REPORT INFORMATION
  Report Type: 
  Country: None (occurrence: None)
  Receive Date: 20060602
  Receipt Date: 20060512
  Transmission Date: 20061013
  Serious: Yes (Hospitalization)
  Sender: FDA-Public Use
  Company Number: GR-ABBOTT-06P-066-0333042-00

PATIENT
  Sex: Female
  Weight: 89 kg

DRUGS (2)
  1. REDUCTIL 15MG [Suspect]
     Indication: OBESITY
     Route: 048
     Dates: start: 20050101, end: 20060410
  2. REDUCTIL 15MG [Suspect]
     Indication: WEIGHT CONTROL
     Dates: start: 20040101, end: 20050101

REACTIONS (1)
  - ACUTE MYOCARDIAL INFARCTION [None]
